FAERS Safety Report 5086438-0 (Version None)
Quarter: 2006Q3

REPORT INFORMATION
  Report Type: 
  Country: None (occurrence: None)
  Receive Date: 20060821
  Receipt Date: 20060821
  Transmission Date: 20061208
  Serious: Yes (Other)
  Sender: FDA-Public Use
  Company Number: None

PATIENT
  Age: 48 Year
  Sex: Female
  Weight: 62.5964 kg

DRUGS (1)
  1. PREDNISONE TAB [Suspect]
     Indication: DERMATITIS CONTACT
     Dosage: 4X 4 DAYS, 3X , 4 DAYS, 2X 4 DAYS  PO  STOPPED 2 DAYS EARLY
     Route: 048
     Dates: start: 20060731, end: 20060814

REACTIONS (5)
  - ANXIETY [None]
  - FEELING ABNORMAL [None]
  - MENTAL DISORDER [None]
  - PSYCHOTIC DISORDER [None]
  - SUICIDAL IDEATION [None]
